FAERS Safety Report 7414301-6 (Version None)
Quarter: 2011Q1

REPORT INFORMATION
  Report Type: 
  Country: None (occurrence: None)
  Receive Date: 20110325
  Receipt Date: 20110325
  Transmission Date: 20110831
  Serious: Yes (Life-Threatening)
  Sender: FDA-Public Use
  Company Number: None

PATIENT
  Age: 13 Year
  Sex: Female
  Weight: 11 kg

DRUGS (2)
  1. CISATRACURIUM 10 MG /ML HOSPIRA, INC FOR ABBOTT [Suspect]
     Indication: RESPIRATORY FAILURE
     Dosage: 0.1 TO 0.4 MG PER KG PER HOUR IV DRIP
     Route: 041
     Dates: start: 20110303, end: 20110401
  2. CISATRACURIUM 10 MG /ML HOSPIRA, INC FOR ABBOTT [Suspect]
     Indication: MECHANICAL VENTILATION
     Dosage: 0.1 TO 0.4 MG PER KG PER HOUR IV DRIP
     Route: 041
     Dates: start: 20110303, end: 20110401

REACTIONS (1)
  - DRUG INEFFECTIVE [None]
